FAERS Safety Report 6108974-8 (Version None)
Quarter: 2009Q1

REPORT INFORMATION
  Report Type: 
  Country: None (occurrence: None)
  Receive Date: 20090306
  Receipt Date: 20090225
  Transmission Date: 20090719
  Serious: Yes (Hospitalization, Disabling, Other)
  Sender: FDA-Public Use
  Company Number: 2007-01814

PATIENT
  Age: 75 Year
  Sex: Female
  Weight: 47 kg

DRUGS (9)
  1. VELCADE [Suspect]
     Indication: MULTIPLE MYELOMA
     Dosage: 1.30 MG/M2, INTRAVENOUS
     Route: 042
     Dates: start: 20070514, end: 20070524
  2. DEXAMETHASONE TAB [Concomitant]
  3. DIFLUCAN [Concomitant]
  4. SULFAMETHOXAZOLE AND TRIMETHOPRIM [Concomitant]
  5. ALLOPURINOL [Concomitant]
  6. ALFAROL (ALFACALCIDOL) [Concomitant]
  7. OMEPRAZOLE [Concomitant]
  8. PROMAC /JPN/ (POLAPREZINC) [Concomitant]
  9. KAMAG G (MAGNESIUM OXIDE) [Concomitant]

REACTIONS (10)
  - BLINDNESS UNILATERAL [None]
  - BONE PAIN [None]
  - FACE OEDEMA [None]
  - HYPONATRAEMIA [None]
  - MALAISE [None]
  - OEDEMA [None]
  - OPTIC NERVE DISORDER [None]
  - PHARYNGEAL OEDEMA [None]
  - VISUAL ACUITY REDUCED [None]
  - VISUAL IMPAIRMENT [None]
